FAERS Safety Report 25080323 (Version 1)
Quarter: 2025Q1

REPORT INFORMATION
  Report Type: Spontaneous
  Country: CN (occurrence: CN)
  Receive Date: 20250315
  Receipt Date: 20250315
  Transmission Date: 20250408
  Serious: Yes (Hospitalization, Other)
  Sender: ABBVIE
  Company Number: CN-ABBVIE-6173146

PATIENT
  Age: 66 Year
  Sex: Male
  Weight: 86 kg

DRUGS (4)
  1. VENCLEXTA [Suspect]
     Active Substance: VENETOCLAX
     Indication: Chronic kidney disease
     Dosage: D2-8
     Route: 048
     Dates: start: 20250214, end: 20250220
  2. VENCLEXTA [Suspect]
     Active Substance: VENETOCLAX
     Indication: Chronic kidney disease
     Route: 048
     Dates: start: 20250213, end: 20250213
  3. DECITABINE [Suspect]
     Active Substance: DECITABINE
     Indication: Myelodysplastic syndrome
     Dosage: D1
     Route: 041
     Dates: start: 20250212, end: 20250212
  4. DECITABINE [Suspect]
     Active Substance: DECITABINE
     Indication: Myelodysplastic syndrome
     Dosage: D2-5
     Route: 041
     Dates: start: 20250213, end: 20250216

REACTIONS (4)
  - Granulocytopenia [Unknown]
  - Neutrophil count decreased [Unknown]
  - White blood cell count decreased [Unknown]
  - Platelet count decreased [Unknown]

NARRATIVE: CASE EVENT DATE: 20250101
